FAERS Safety Report 7533104-5 (Version None)
Quarter: 2011Q2

REPORT INFORMATION
  Report Type: 
  Country: None (occurrence: None)
  Receive Date: 20110608
  Receipt Date: 20110524
  Transmission Date: 20111010
  Serious: No
  Sender: FDA-Public Use
  Company Number: US-B.I. PHARMACEUTICALS,INC./RIDGEFIELD-2011-BP-08687BP

PATIENT
  Age: 78 Year
  Sex: Female

DRUGS (9)
  1. PRADAXA [Suspect]
     Indication: ANTICOAGULANT THERAPY
  2. FOSAMAX [Concomitant]
  3. TOPROL-XL [Concomitant]
     Indication: HYPERTENSION
  4. LEVOXYL [Concomitant]
  5. PRADAXA [Suspect]
     Indication: CEREBROVASCULAR ACCIDENT PROPHYLAXIS
  6. LIPITOR [Concomitant]
     Indication: PROPHYLAXIS
  7. CALCIUM + D [Concomitant]
  8. PRADAXA [Suspect]
     Indication: ATRIAL FIBRILLATION
     Dosage: 300 MG
     Route: 048
     Dates: start: 20101201, end: 20110208
  9. DIGOXIN [Concomitant]
     Indication: CARDIAC DISORDER

REACTIONS (3)
  - RASH GENERALISED [None]
  - RASH PRURITIC [None]
  - INSOMNIA [None]
